FAERS Safety Report 6665964-4 (Version None)
Quarter: 2010Q2

REPORT INFORMATION
  Report Type: 
  Country: None (occurrence: None)
  Receive Date: 20100402
  Receipt Date: 20100324
  Transmission Date: 20101027
  Serious: Yes (Other)
  Sender: FDA-Public Use
  Company Number: PH-PFIZER INC-2010037426

PATIENT
  Age: 70 Year
  Sex: Female

DRUGS (2)
  1. NEURONTIN [Suspect]
     Dosage: 100 MG, 3X/DAY
     Dates: start: 20100301
  2. NORVASC [Concomitant]
     Dosage: 5 MG, 2X/DAY

REACTIONS (2)
  - HYPERTENSION [None]
  - VOMITING [None]
